FAERS Safety Report 8862235 (Version 1)
Quarter: 2012Q4

REPORT INFORMATION
  Report Type: 
  Country: CH (occurrence: CH)
  Receive Date: 20121026
  Receipt Date: 20121026
  Transmission Date: 20130627
  Serious: Yes (Congenital Anomaly, Other)
  Sender: FDA-Public Use
  Company Number: CH-ROCHE-1149524

PATIENT
  Sex: Female

DRUGS (1)
  1. RIBAVIRIN [Suspect]
     Indication: HEPATITIS C
     Dosage: drug withdrawn
     Route: 064
     Dates: end: 201109

REACTIONS (3)
  - Dysmorphism [Unknown]
  - Gastroschisis [Unknown]
  - Maternal exposure during pregnancy [Unknown]
